FAERS Safety Report 8104083-7 (Version None)
Quarter: 2012Q1

REPORT INFORMATION
  Report Type: 
  Country: None (occurrence: None)
  Receive Date: 20120201
  Receipt Date: 20120128
  Transmission Date: 20120608
  Serious: No
  Sender: FDA-Public Use
  Company Number: US-PFIZER INC-2012023590

PATIENT
  Sex: Female
  Weight: 73.923 kg

DRUGS (6)
  1. SPIRONOLACTONE [Concomitant]
     Dosage: UNK
  2. ETHINYLESTRADIOL/NORGESTIMATE [Concomitant]
     Dosage: UNK
  3. NEUMEGA [Suspect]
     Indication: PLATELET COUNT DECREASED
     Dosage: 5 MG, WEEKLY
     Route: 058
     Dates: start: 20120121
  4. ZYRTEC [Concomitant]
     Dosage: UNK
  5. FLUOXETINE [Concomitant]
     Dosage: UNK
  6. LASIX [Concomitant]
     Dosage: UNK

REACTIONS (4)
  - INJECTION SITE HAEMATOMA [None]
  - INJECTION SITE REACTION [None]
  - INJECTION SITE ERYTHEMA [None]
  - NERVOUSNESS [None]
